FAERS Safety Report 6557846-3 (Version None)
Quarter: 2010Q1

REPORT INFORMATION
  Report Type: 
  Country: None (occurrence: None)
  Receive Date: 20100129
  Receipt Date: 20091002
  Transmission Date: 20100710
  Serious: No
  Sender: FDA-Public Use
  Company Number: US-BAUSCH-2009BL004479

PATIENT
  Age: 84 Year
  Sex: Female

DRUGS (3)
  1. TOBRAMYCIN AND DEXAMETHASONE OPHTHALMIC SUSPENSION USP 0.3%/0.1% [Suspect]
     Indication: CHALAZION
     Route: 047
     Dates: start: 20090901, end: 20090910
  2. MAXZIDE [Concomitant]
     Route: 048
  3. MULTIPLE VITAMINS [Concomitant]

REACTIONS (1)
  - DRUG INEFFECTIVE [None]
